FAERS Safety Report 19285648 (Version 1)
Quarter: 2021Q2

REPORT INFORMATION
  Report Type: Report from Study
  Country: DE (occurrence: DE)
  Receive Date: 20210521
  Receipt Date: 20210521
  Transmission Date: 20210717
  Serious: Yes (Hospitalization, Other)
  Sender: FDA-Public Use
  Company Number: DE-MYLANLABS-2021M1029226

PATIENT
  Age: 59 Year
  Sex: Female
  Weight: 58 kg

DRUGS (13)
  1. PANTOPRAZOLE [Concomitant]
     Active Substance: PANTOPRAZOLE
     Indication: PROPHYLAXIS AGAINST GASTROINTESTINAL ULCER
     Dosage: 40 MILLIGRAM
     Route: 048
     Dates: start: 20190104, end: 20201106
  2. DEXAMETHASONE. [Suspect]
     Active Substance: DEXAMETHASONE
     Dosage: 8 MILLIGRAM (ON DAYS 1,2,15,16)
     Route: 042
     Dates: start: 20200910, end: 20200910
  3. DEXAMETHASONE. [Suspect]
     Active Substance: DEXAMETHASONE
     Indication: PLASMA CELL MYELOMA
     Dosage: 40 MILLIGRAM, QW
     Route: 042
     Dates: start: 20190104, end: 20190104
  4. CARFILZOMIB [Suspect]
     Active Substance: CARFILZOMIB
     Indication: PLASMA CELL MYELOMA
     Dosage: 20 MILLIGRAM/SQ. METER (DAYS 1, 2)
     Route: 042
     Dates: start: 20190104, end: 20190104
  5. SIMVASTATIN. [Concomitant]
     Active Substance: SIMVASTATIN
     Indication: HYPERCHOLESTEROLAEMIA
     Dosage: 20 MILLIGRAM, QD
     Route: 048
     Dates: start: 20200928, end: 20201106
  6. PENTACARINAT [Concomitant]
     Active Substance: PENTAMIDINE ISETHIONATE
     Indication: PNEUMOCYSTIS JIROVECII PNEUMONIA
     Dosage: 300 MILLIGRAM, Q28D
     Route: 065
     Dates: start: 20190204, end: 20201106
  7. ACICLOVIR [Concomitant]
     Active Substance: ACYCLOVIR
     Indication: VIRAL INFECTION
     Dosage: 400 MILLIGRAM, BID
     Route: 065
     Dates: start: 20190104, end: 20201106
  8. LENALIDOMIDE [Suspect]
     Active Substance: LENALIDOMIDE
     Dosage: 7.5 MG; 15 MG EVERY OTHER DAY
     Route: 048
     Dates: start: 20200910, end: 20200910
  9. ISATUXIMAB [Suspect]
     Active Substance: ISATUXIMAB
     Dosage: 10 MILLIGRAM/KILOGRAM, BIWEEKLY
     Route: 042
     Dates: start: 20200910, end: 20200910
  10. LENALIDOMIDE [Suspect]
     Active Substance: LENALIDOMIDE
     Indication: PLASMA CELL MYELOMA
     Dosage: 7.5 MILLIGRAM (7.5 MG; 15 MG EVERY OTHER DAY)
     Route: 048
     Dates: start: 20190104, end: 20190104
  11. ASPIRIN. [Concomitant]
     Active Substance: ASPIRIN
     Indication: THROMBOSIS PROPHYLAXIS
     Dosage: 100 MILLIGRAM
     Route: 048
     Dates: start: 20190104, end: 20201106
  12. ISATUXIMAB [Suspect]
     Active Substance: ISATUXIMAB
     Indication: PLASMA CELL MYELOMA
     Dosage: 10 MILLIGRAM/KILOGRAM, QW
     Route: 042
     Dates: start: 20190104, end: 20190104
  13. CARFILZOMIB [Suspect]
     Active Substance: CARFILZOMIB
     Dosage: 36 MILLIGRAM/SQ. METER (ON DAYS 1, 2, 15, 16)
     Route: 042
     Dates: start: 20200910, end: 20200910

REACTIONS (1)
  - Cerebrovascular accident [Recovered/Resolved]

NARRATIVE: CASE EVENT DATE: 20200911
